FAERS Safety Report 4464843-0 (Version None)
Quarter: 2004Q4

REPORT INFORMATION
  Report Type: 
  Country: None (occurrence: None)
  Receive Date: 20041004
  Receipt Date: 20031111
  Transmission Date: 20050328
  Serious: No
  Sender: FDA-Public Use
  Company Number: 354376

PATIENT
  Age: 49 Year
  Sex: Male
  Weight: 111.4 kg

DRUGS (5)
  1. COREG [Suspect]
     Indication: ARRHYTHMIA
     Dosage: 25MG THREE TIMES PER DAY
     Route: 048
  2. DILTIAZEM [Concomitant]
  3. QUINIDINE HCL [Concomitant]
  4. SPIRONOLACTONE [Concomitant]
  5. ALLEGRA [Concomitant]

REACTIONS (4)
  - ARRHYTHMIA [None]
  - DRUG INEFFECTIVE [None]
  - HEART RATE INCREASED [None]
  - PHARMACEUTICAL PRODUCT COMPLAINT [None]
